FAERS Safety Report 5238354-9 (Version None)
Quarter: 2007Q1

REPORT INFORMATION
  Report Type: 
  Country: None (occurrence: None)
  Receive Date: 20070215
  Receipt Date: 20070212
  Transmission Date: 20070707
  Serious: Yes (Hospitalization)
  Sender: FDA-Public Use
  Company Number: FR-BRISTOL-MYERS SQUIBB COMPANY-13676812

PATIENT
  Age: 87 Year
  Sex: Male

DRUGS (1)
  1. COUMADIN [Suspect]
     Indication: ISCHAEMIC STROKE
     Route: 048
     Dates: end: 20061127

REACTIONS (3)
  - GLOBULINS DECREASED [None]
  - RECTAL HAEMORRHAGE [None]
  - URINARY TRACT INFECTION [None]
